FAERS Safety Report 7349274-8 (Version None)
Quarter: 2011Q1

REPORT INFORMATION
  Report Type: 
  Country: None (occurrence: None)
  Receive Date: 20110314
  Receipt Date: 20110303
  Transmission Date: 20110831
  Serious: Yes (Death, Other)
  Sender: FDA-Public Use
  Company Number: IT-CELGENEUS-083-20785-10070167

PATIENT

DRUGS (9)
  1. ENOXAPARIN [Concomitant]
     Indication: THROMBOSIS PROPHYLAXIS
     Dosage: 40 MILLIGRAM
     Route: 065
     Dates: start: 20031201
  2. THALIDOMIDE [Suspect]
     Indication: MULTIPLE MYELOMA
     Dosage: 100 MILLIGRAM
     Route: 048
  3. TRIMETHOPRIM + SULFAMETHOXAZOLE [Concomitant]
     Indication: INFECTION PROPHYLAXIS
     Route: 065
  4. WARFARIN [Concomitant]
     Indication: THROMBOSIS PROPHYLAXIS
     Route: 065
  5. MELPHALAN [Suspect]
     Indication: MULTIPLE MYELOMA
     Dosage: 4 MILLIGRAM/SQ. METER
     Route: 048
  6. PREDNISONE [Suspect]
     Indication: MULTIPLE MYELOMA
     Dosage: 40 MILLIGRAM/SQ. METER
     Route: 048
  7. PREGYLATED LIPOSOMAL DOXORUBICIN [Suspect]
     Indication: MULTIPLE MYELOMA
     Dosage: 40 MILLIGRAM/SQ. METER
     Route: 065
  8. DEXAMETHASONE [Suspect]
     Indication: MULTIPLE MYELOMA
     Dosage: 40 MILLIGRAM
     Route: 065
  9. QUINOLONES [Concomitant]
     Indication: INFECTION PROPHYLAXIS
     Route: 065

REACTIONS (14)
  - CARDIOTOXICITY [None]
  - PYREXIA [None]
  - INFECTION [None]
  - THROMBOCYTOPENIA [None]
  - CYTOMEGALOVIRUS INFECTION [None]
  - NEUTROPENIA [None]
  - DEEP VEIN THROMBOSIS [None]
  - NEUROPATHY PERIPHERAL [None]
  - SEPTIC SHOCK [None]
  - CELLULITIS ORBITAL [None]
  - ASPERGILLOSIS [None]
  - PNEUMONIA [None]
  - OEDEMA [None]
  - BACTERAEMIA [None]
